FAERS Safety Report 8496182 (Version 2)
Quarter: 2012Q4

REPORT INFORMATION
  Report Type: 
  Country: US (occurrence: US)
  Receive Date: 20120405
  Receipt Date: 20121005
  Transmission Date: 20130627
  Serious: Yes (Death, Hospitalization)
  Sender: FDA-Public Use
  Company Number: US-GLAXOSMITHKLINE-A0971911A

PATIENT
  Age: 78 Year
  Sex: Male
  Weight: 83.9 kg

DRUGS (13)
  1. FLOLAN [Suspect]
     Indication: PULMONARY ARTERIAL HYPERTENSION
     Dosage: 31.25NGKM See dosage text
     Route: 042
     Dates: start: 20080117
  2. FLOLAN [Suspect]
     Indication: PRODUCT USED FOR UNKNOWN INDICATION
  3. SPIRONOLACTONE [Concomitant]
     Dosage: 100MG Per day
  4. DEMADEX [Concomitant]
     Dosage: 40MG Twice per day
  5. PLAVIX [Concomitant]
     Dosage: 75MG Per day
  6. PROVENTIL [Concomitant]
     Dosage: 2PUFF As required
     Route: 055
  7. NOVOLOG [Concomitant]
     Dosage: 13UNIT per day
  8. SPIRIVA [Concomitant]
     Dosage: 18MCG Per day
     Route: 055
  9. ADVAIR [Concomitant]
     Route: 055
  10. CRESTOR [Concomitant]
     Dosage: 20MG Per day
  11. PANTOPRAZOLE [Concomitant]
     Dosage: 40MG Per day
  12. TYLENOL ARTHRITIS [Concomitant]
     Dosage: 2TAB As required
  13. TRACLEER [Concomitant]
     Dosage: 125MG Twice per day

REACTIONS (7)
  - Death [Fatal]
  - Dyspnoea [Unknown]
  - Oedema peripheral [Unknown]
  - Erythema [Unknown]
  - Infusion site swelling [Unknown]
  - Device alarm issue [Unknown]
  - Medical device complication [Unknown]
